FAERS Safety Report 17272697 (Version 8)
Quarter: 2020Q1

REPORT INFORMATION
  Report Type: Spontaneous
  Country: US (occurrence: US)
  Receive Date: 20200115
  Receipt Date: 20200320
  Transmission Date: 20200409
  Serious: No
  Sender: FDA-Public Use
  Company Number: US-PFIZER INC-2020013474

PATIENT
  Age: 72 Year
  Sex: Male
  Weight: 78.93 kg

DRUGS (7)
  1. CAVERJECT IMPULSE [Suspect]
     Active Substance: ALPROSTADIL
     Dosage: 20 UG, UNK
     Dates: start: 2019
  2. CAVERJECT IMPULSE [Suspect]
     Active Substance: ALPROSTADIL
     Dosage: UNK (2-20UG)
  3. CAVERJECT IMPULSE [Suspect]
     Active Substance: ALPROSTADIL
     Indication: BLOOD TESTOSTERONE DECREASED
     Dosage: 5 UG, UNK
  4. CAVERJECT IMPULSE [Suspect]
     Active Substance: ALPROSTADIL
     Dosage: 10 UG, UNK
  5. CAVERJECT IMPULSE [Suspect]
     Active Substance: ALPROSTADIL
     Dosage: UNK
  6. LOTREL [Concomitant]
     Active Substance: AMLODIPINE BESYLATE\BENAZEPRIL HYDROCHLORIDE
     Indication: HYPERTENSION
     Dosage: UNK UNK, 1X/DAY ((20/30 ONCE DAILY)
  7. ALFUZOSIN HCL [Concomitant]
     Active Substance: ALFUZOSIN HYDROCHLORIDE
     Indication: DYSURIA
     Dosage: 10 MG, 1X/DAY ((10MG CAPLET TAKEN BY MOUTH EVERY NIGHT)
     Route: 048

REACTIONS (4)
  - Drug ineffective [Unknown]
  - Product administration error [Unknown]
  - Injection site pain [Unknown]
  - Product storage error [Unknown]
